FAERS Safety Report 8998056 (Version 1)
Quarter: 2013Q1

REPORT INFORMATION
  Report Type: Spontaneous
  Country: US (occurrence: US)
  Receive Date: 20130104
  Receipt Date: 20130104
  Transmission Date: 20140127
  Serious: No
  Sender: FDA-Public Use
  Company Number: US-009507513-1301USA000831

PATIENT
  Age: 48 Year
  Sex: Female

DRUGS (5)
  1. AZASITE [Suspect]
     Indication: EYE INFLAMMATION
     Dosage: 1 GTT, BID
     Route: 047
     Dates: start: 20080402
  2. AZASITE [Suspect]
     Indication: EYE INFECTION
     Dosage: 1 GTT, QD
  3. AZASITE [Suspect]
     Indication: DRY EYE
  4. ADVAIR [Concomitant]
     Dosage: UNK
  5. RESTASIS [Concomitant]
     Dosage: UNK

REACTIONS (1)
  - Eye irritation [Recovered/Resolved]
